FAERS Safety Report 25279046 (Version 1)
Quarter: 2025Q2

REPORT INFORMATION
  Report Type: Spontaneous
  Country: US (occurrence: US)
  Receive Date: 20250507
  Receipt Date: 20250507
  Transmission Date: 20250716
  Serious: Yes (Other)
  Sender: NOVO NORDISK
  Company Number: US-NOVOPROD-886067

PATIENT
  Sex: Female

DRUGS (1)
  1. WEGOVY [Suspect]
     Active Substance: SEMAGLUTIDE
     Indication: Product used for unknown indication
     Route: 058
     Dates: start: 2021

REACTIONS (2)
  - Spinal laminectomy [Not Recovered/Not Resolved]
  - Intracranial aneurysm [Not Recovered/Not Resolved]

NARRATIVE: CASE EVENT DATE: 20211201
